FAERS Safety Report 7913196 (Version 48)
Quarter: 2015Q2

REPORT INFORMATION
  Report Type: Report from Study
  Country: CA (occurrence: CA)
  Receive Date: 20110425
  Receipt Date: 20150525
  Transmission Date: 20150821
  Serious: Yes (Other)
  Sender: FDA-Public Use
  Company Number: PHHY2011CA31362

PATIENT
  Age: 60 Year
  Sex: Female
  Weight: 71.66 kg

DRUGS (7)
  1. SANDOSTATIN LAR DEPOT [Suspect]
     Active Substance: OCTREOTIDE ACETATE
     Dosage: 30 MG, QMO
     Route: 030
  2. SANDOSTATIN LAR DEPOT [Suspect]
     Active Substance: OCTREOTIDE ACETATE
     Dosage: 20 MG, BIW
     Route: 030
  3. SANDOSTATIN LAR DEPOT [Suspect]
     Active Substance: OCTREOTIDE ACETATE
     Indication: NEUROENDOCRINE TUMOUR
     Dosage: 20 MG, UNK
     Route: 065
     Dates: start: 2008
  4. SANDOSTATIN LAR DEPOT [Suspect]
     Active Substance: OCTREOTIDE ACETATE
     Dosage: 40 MG, EVERY 4 WEEKS
     Route: 030
  5. SANDOSTATIN LAR DEPOT [Suspect]
     Active Substance: OCTREOTIDE ACETATE
     Indication: CARCINOID TUMOUR
     Dosage: 40 MG, QMO
     Route: 030
     Dates: start: 2008
  6. SANDOSTATIN LAR DEPOT [Suspect]
     Active Substance: OCTREOTIDE ACETATE
     Dosage: 20 MG, QMO
     Route: 030
     Dates: start: 20110411
  7. SANDOSTATIN LAR DEPOT [Suspect]
     Active Substance: OCTREOTIDE ACETATE
     Dosage: 30 MG, QMO  (EVERY 4 WEEKS)
     Route: 030

REACTIONS (55)
  - Back pain [Unknown]
  - Oropharyngeal pain [Unknown]
  - Pain in extremity [Recovered/Resolved]
  - Epigastric discomfort [Unknown]
  - Dizziness [Unknown]
  - Abdominal pain [Unknown]
  - Cholelithiasis [Unknown]
  - Wheezing [Not Recovered/Not Resolved]
  - Flushing [Not Recovered/Not Resolved]
  - Drug administration error [Unknown]
  - Diarrhoea [Unknown]
  - Constipation [Unknown]
  - Breast mass [Unknown]
  - Injection site bruising [Unknown]
  - Weight decreased [Unknown]
  - Arthralgia [Unknown]
  - Decreased appetite [Unknown]
  - Abdominal pain upper [Unknown]
  - Blood pressure diastolic decreased [Not Recovered/Not Resolved]
  - Hot flush [Recovered/Resolved]
  - Miliaria [Unknown]
  - Musculoskeletal chest pain [Not Recovered/Not Resolved]
  - Nasopharyngitis [Unknown]
  - Nausea [Unknown]
  - Abdominal pain lower [Unknown]
  - Multiple sclerosis [Unknown]
  - Multiple sclerosis relapse [Unknown]
  - Injection site haemorrhage [Unknown]
  - Injection site erythema [Unknown]
  - Pneumonia [Unknown]
  - Intestinal obstruction [Unknown]
  - Malignant neoplasm progression [Unknown]
  - Tenderness [Unknown]
  - Rhinorrhoea [Unknown]
  - Cataract [Recovering/Resolving]
  - Fluid intake reduced [Unknown]
  - Bone pain [Unknown]
  - Fatigue [Unknown]
  - Hypoaesthesia [Recovered/Resolved]
  - Breast cancer [Recovering/Resolving]
  - Injection site pain [Unknown]
  - Haemorrhage [Unknown]
  - Feeling hot [Unknown]
  - Cough [Not Recovered/Not Resolved]
  - Irritable bowel syndrome [Unknown]
  - Blood pressure increased [Unknown]
  - Body temperature decreased [Unknown]
  - Abdominal discomfort [Unknown]
  - Grip strength decreased [Recovered/Resolved]
  - Pulmonary hypertension [Unknown]
  - Breast calcifications [Unknown]
  - Disease recurrence [Unknown]
  - Gastrointestinal disorder [Unknown]
  - Frequent bowel movements [Unknown]
  - Abdominal distension [Unknown]

NARRATIVE: CASE EVENT DATE: 2008
